FAERS Safety Report 18964932 (Version 1)
Quarter: 2021Q1

REPORT INFORMATION
  Report Type: Spontaneous
  Country: IN (occurrence: IN)
  Receive Date: 20210303
  Receipt Date: 20210303
  Transmission Date: 20210420
  Serious: Yes (Death)
  Sender: FDA-Public Use
  Company Number: IN-PFIZER INC-2020408753

PATIENT
  Age: 52 Year
  Sex: Female

DRUGS (4)
  1. TAYO [COLECALCIFEROL] [Concomitant]
     Dosage: 6000 IU, WEEKLY
  2. ZOLEDRONIC ACID [Concomitant]
     Active Substance: ZOLEDRONIC ACID
     Dosage: 4 MG
     Route: 042
  3. DACOPLICE [Suspect]
     Active Substance: DACOMITINIB
     Indication: LUNG CANCER METASTATIC
     Dosage: 45 MG, 1X/DAY
     Route: 048
     Dates: start: 20200914
  4. CLAVICO [Concomitant]
     Dosage: 1X/DAY

REACTIONS (1)
  - Death [Fatal]
